FAERS Safety Report 8248432-8 (Version None)
Quarter: 2012Q1

REPORT INFORMATION
  Report Type: 
  Country: None (occurrence: None)
  Receive Date: 20120330
  Receipt Date: 20120321
  Transmission Date: 20120608
  Serious: Yes (Other)
  Sender: FDA-Public Use
  Company Number: RU-ASTRAZENECA-2012SE19604

PATIENT
  Age: 9 Year
  Sex: Male

DRUGS (2)
  1. NEXIUM [Suspect]
     Indication: GASTRITIS EROSIVE
     Route: 048
     Dates: start: 20110101, end: 20110101
  2. NEXIUM [Suspect]
     Route: 048
     Dates: start: 20110101, end: 20110101

REACTIONS (3)
  - HAEMORRHAGE [None]
  - GASTRITIS EROSIVE [None]
  - OVERDOSE [None]
